FAERS Safety Report 19415742 (Version 1)
Quarter: 2021Q2

REPORT INFORMATION
  Report Type: Spontaneous
  Country: CZ (occurrence: CZ)
  Receive Date: 20210615
  Receipt Date: 20210615
  Transmission Date: 20210717
  Serious: Yes (Other)
  Sender: FDA-Public Use
  Company Number: NVSC2021CZ125801

PATIENT
  Sex: Male

DRUGS (2)
  1. COSENTYX [Suspect]
     Active Substance: SECUKINUMAB
     Indication: PRODUCT USED FOR UNKNOWN INDICATION
     Dosage: UNK
     Route: 065
     Dates: start: 202011, end: 202101
  2. CELECOXIB. [Concomitant]
     Active Substance: CELECOXIB
     Indication: PRODUCT USED FOR UNKNOWN INDICATION
     Dosage: 200 MG, UNKNOWN (EVERY OTHER DAY)
     Route: 065

REACTIONS (9)
  - Arthralgia [Recovering/Resolving]
  - Gait disturbance [Unknown]
  - Polyarthritis [Unknown]
  - Poor quality sleep [Recovered/Resolved]
  - Drug ineffective [Unknown]
  - Malaise [Unknown]
  - Back pain [Recovered/Resolved]
  - Musculoskeletal stiffness [Recovering/Resolving]
  - Joint effusion [Unknown]
